FAERS Safety Report 13996876 (Version 1)
Quarter: 2017Q3

REPORT INFORMATION
  Report Type: Spontaneous
  Country: SK (occurrence: SK)
  Receive Date: 20170921
  Receipt Date: 20170921
  Transmission Date: 20171128
  Serious: Yes (Hospitalization, Other)
  Sender: FDA-Public Use
  Company Number: SK-JNJFOC-20170918024

PATIENT
  Age: 57 Year
  Sex: Male

DRUGS (4)
  1. IBRUTINIB [Suspect]
     Active Substance: IBRUTINIB
     Indication: CHRONIC LYMPHOCYTIC LEUKAEMIA
     Route: 048
     Dates: start: 201511
  2. IBRUTINIB [Suspect]
     Active Substance: IBRUTINIB
     Indication: CHRONIC LYMPHOCYTIC LEUKAEMIA
     Route: 048
     Dates: start: 201412
  3. VORICONAZOLE. [Concomitant]
     Active Substance: VORICONAZOLE
     Indication: SINUSITIS
     Route: 065
  4. VORICONAZOLE. [Concomitant]
     Active Substance: VORICONAZOLE
     Indication: SINUSITIS
     Route: 065

REACTIONS (8)
  - Respiratory tract infection [Unknown]
  - Pneumonia [Unknown]
  - Cough [Unknown]
  - Urinary tract infection [Unknown]
  - Pneumonia [Unknown]
  - Cholecystitis [Unknown]
  - Bronchitis [Unknown]
  - Pancreatitis acute [Unknown]

NARRATIVE: CASE EVENT DATE: 201501
